FAERS Safety Report 13307228 (Version 3)
Quarter: 2017Q2

REPORT INFORMATION
  Report Type: Spontaneous
  Country: JP (occurrence: JP)
  Receive Date: 20170308
  Receipt Date: 20170407
  Transmission Date: 20170830
  Serious: Yes (Life-Threatening, Hospitalization)
  Sender: FDA-Public Use
  Company Number: JP-ASTRAZENECA-2017SE23246

PATIENT
  Age: 31760 Day
  Sex: Female
  Weight: 36 kg

DRUGS (17)
  1. FEBURIC [Concomitant]
     Active Substance: FEBUXOSTAT
     Dosage: 10 MG DAILY AFTER BREAKFAST
     Route: 048
     Dates: start: 20170203
  2. ASPARA POTASSIUM [Concomitant]
     Active Substance: POTASSIUM ASPARTATE
     Dates: start: 20160930
  3. TULOBUTEROL [Concomitant]
     Active Substance: TULOBUTEROL
     Dates: start: 20170205
  4. EXCEGRAN [Concomitant]
     Active Substance: ZONISAMIDE
     Dosage: 100 MG, DAILY AFTER BREAKFAST
     Route: 048
     Dates: start: 20160812, end: 20170225
  5. BISOPROLOL FUMARATE. [Concomitant]
     Active Substance: BISOPROLOL FUMARATE
     Dosage: 1.25 MG DAILY AFTER BREAKFAST
     Route: 065
     Dates: start: 20161021, end: 20161201
  6. NEXIUM [Suspect]
     Active Substance: ESOMEPRAZOLE MAGNESIUM
     Indication: GASTROOESOPHAGEAL REFLUX DISEASE
     Route: 048
     Dates: end: 20170215
  7. ALFACALCIDOL [Concomitant]
     Active Substance: ALFACALCIDOL
     Dosage: 0.25 MG DAILY AFTER BREAKFAST
     Route: 048
  8. CILNIDIPINE [Concomitant]
     Active Substance: CILNIDIPINE
     Dosage: 5 MG DAILY AFTER BREAKFAST
     Route: 048
     Dates: start: 20161007, end: 20161013
  9. CILNIDIPINE [Concomitant]
     Active Substance: CILNIDIPINE
     Dosage: 10 MG DAILY AFTER BREAKFAST
     Route: 048
     Dates: start: 20161014
  10. MIYA-BM [Concomitant]
     Active Substance: CLOSTRIDIUM BUTYRICUM SPORES STRAIN M-55
     Route: 065
     Dates: start: 20160812
  11. MIYA-BM [Concomitant]
     Active Substance: CLOSTRIDIUM BUTYRICUM SPORES STRAIN M-55
     Dosage: DOSE UNKNOWN
     Route: 065
  12. NEXIUM [Suspect]
     Active Substance: ESOMEPRAZOLE MAGNESIUM
     Indication: GASTROOESOPHAGEAL REFLUX DISEASE
     Dosage: 20 MG, DAILY AFTER BREAKFAST
     Route: 048
     Dates: start: 20160812
  13. BISOPROLOL FUMARATE. [Concomitant]
     Active Substance: BISOPROLOL FUMARATE
     Dosage: 2.5 MG DAILY AFTER BREAKFAST
     Route: 065
     Dates: start: 20161202
  14. EXCEGRAN [Concomitant]
     Active Substance: ZONISAMIDE
     Route: 048
     Dates: start: 20151229
  15. AMBROXOL HYDROCHLORIDE [Concomitant]
     Active Substance: AMBROXOL HYDROCHLORIDE
     Dosage: 15 MG, DAILY AFTER BREAKFAST,LUNCH, AND EVENING MEAL
     Route: 065
     Dates: start: 20161111
  16. CARBOCISTEINE [Concomitant]
     Active Substance: CARBOCYSTEINE
     Dosage: 250 MG, DAILY, AFTER BREAKFAST,LUNCH, AND EVENING MEAL
     Route: 048
     Dates: start: 20160819, end: 20161110
  17. ASPARA POTASSIUM [Concomitant]
     Active Substance: POTASSIUM ASPARTATE
     Dates: start: 20160812

REACTIONS (2)
  - Diarrhoea [Recovering/Resolving]
  - Electrolyte imbalance [Recovering/Resolving]

NARRATIVE: CASE EVENT DATE: 20161103
